FAERS Safety Report 21978693 (Version 1)
Quarter: 2023Q1

REPORT INFORMATION
  Report Type: Spontaneous
  Country: PT (occurrence: PT)
  Receive Date: 20230210
  Receipt Date: 20230210
  Transmission Date: 20230417
  Serious: Yes (Death, Other)
  Sender: FDA-Public Use
  Company Number: None

PATIENT
  Age: 69 Year
  Sex: Female
  Weight: 54 kg

DRUGS (15)
  1. DULOXETINE HYDROCHLORIDE [Suspect]
     Active Substance: DULOXETINE HYDROCHLORIDE
     Indication: Depression
     Dosage: 30 MG, DAILY
     Route: 048
     Dates: start: 20220817, end: 20220823
  2. DULOXETINE HYDROCHLORIDE [Suspect]
     Active Substance: DULOXETINE HYDROCHLORIDE
     Dosage: 60 MG, DAILY
     Route: 048
     Dates: start: 20220824
  3. LORAZEPAM [Concomitant]
     Active Substance: LORAZEPAM
     Indication: Product used for unknown indication
     Dosage: 2.5 MG, DAILY (AT NIGHT)
     Route: 048
  4. CARBONATO DE CALCIO + VITAMINA D [Concomitant]
     Indication: Product used for unknown indication
     Dosage: UNK UNK, UNKNOWN
     Route: 048
  5. ADALIMUMAB [Concomitant]
     Active Substance: ADALIMUMAB
     Indication: Product used for unknown indication
     Dosage: 40 MG, 2/M
     Route: 058
  6. ADALIMUMAB [Concomitant]
     Active Substance: ADALIMUMAB
     Dosage: 40 MG, 2/W
     Route: 058
  7. URSODIOL [Concomitant]
     Active Substance: URSODIOL
     Indication: Product used for unknown indication
     Dosage: 500 MG, DAILY (AT LUNCH)
     Route: 048
  8. URSODIOL [Concomitant]
     Active Substance: URSODIOL
     Indication: Product used for unknown indication
     Dosage: 250 MG, DAILY (AT LUCH)
     Route: 048
  9. FOLIC ACID [Concomitant]
     Active Substance: FOLIC ACID
     Indication: Product used for unknown indication
     Dosage: 5 MG, DAILY (AT BREAKFAST)
     Route: 048
  10. NEUROBION [CYANOCOBALAMIN;PYRIDOXINE HYDROCHL [Concomitant]
     Indication: Product used for unknown indication
     Dosage: UNK UNK, MONTHLY (1/M)
  11. CITICOLINA [CITICOLINE] [Concomitant]
     Indication: Product used for unknown indication
     Dosage: 2 ML, TID
     Route: 048
  12. TRAZODONE HYDROCHLORIDE [Concomitant]
     Active Substance: TRAZODONE HYDROCHLORIDE
     Indication: Product used for unknown indication
     Dosage: 150 MG, DAILY (AT BED TIME)
     Route: 048
  13. FERROUS SULFATE [Concomitant]
     Active Substance: FERROUS SULFATE
     Indication: Product used for unknown indication
     Dosage: 247.25 MG, DAILY
     Route: 048
  14. CHOLECALCIFEROL [Concomitant]
     Active Substance: CHOLECALCIFEROL
     Indication: Product used for unknown indication
  15. FERROUS SULFATE [Concomitant]
     Active Substance: FERROUS SULFATE
     Indication: Product used for unknown indication
     Dosage: 1 DOSAGE FORM, DAILY
     Route: 065

REACTIONS (5)
  - Death [Fatal]
  - Weight decreased [Not Recovered/Not Resolved]
  - Decreased appetite [Not Recovered/Not Resolved]
  - Taste disorder [Not Recovered/Not Resolved]
  - Dry mouth [Not Recovered/Not Resolved]

NARRATIVE: CASE EVENT DATE: 20220901
